FAERS Safety Report 6581996-9 (Version None)
Quarter: 2010Q1

REPORT INFORMATION
  Report Type: 
  Country: None (occurrence: None)
  Receive Date: 20100215
  Receipt Date: 20100211
  Transmission Date: 20100710
  Serious: Yes (Hospitalization)
  Sender: FDA-Public Use
  Company Number: FR-MERCK-1002FRA00052

PATIENT
  Age: 73 Year
  Sex: Female

DRUGS (5)
  1. PRIMAXIN [Suspect]
     Indication: NOCARDIOSIS
     Route: 042
     Dates: start: 20091026, end: 20091102
  2. PRIMAXIN [Suspect]
     Route: 042
     Dates: start: 20091109
  3. BACTRIM [Suspect]
     Indication: NOCARDIOSIS
     Route: 048
     Dates: start: 20091026, end: 20091102
  4. BACTRIM [Suspect]
     Route: 048
     Dates: start: 20091103
  5. OMEPRAZOLE [Concomitant]
     Route: 048
     Dates: start: 20090101

REACTIONS (2)
  - HYPONATRAEMIA [None]
  - INAPPROPRIATE ANTIDIURETIC HORMONE SECRETION [None]
